FAERS Safety Report 17157536 (Version 1)
Quarter: 2019Q4

REPORT INFORMATION
  Report Type: Spontaneous
  Country: US (occurrence: US)
  Receive Date: 20191213
  Receipt Date: 20191213
  Transmission Date: 20200122
  Serious: Yes (Life-Threatening, Other)
  Sender: FDA-Public Use
  Company Number: None

PATIENT
  Age: 48 Year
  Sex: Female
  Weight: 58.5 kg

DRUGS (8)
  1. RISPERIDONE. [Suspect]
     Active Substance: RISPERIDONE
     Indication: DISSOCIATION
     Dosage: ?          QUANTITY:60 TABLET(S);?
     Route: 048
     Dates: start: 20141022, end: 20191003
  2. TUMERIC [Concomitant]
     Active Substance: HERBALS\TURMERIC
  3. CLONAZEPAM. [Concomitant]
     Active Substance: CLONAZEPAM
  4. SAM-E [Concomitant]
     Active Substance: ADEMETIONINE
  5. RODIOLA [Concomitant]
  6. UNISOM SLEEPTABS [Concomitant]
     Active Substance: DOXYLAMINE SUCCINATE
  7. PROPRANOLOL [Concomitant]
     Active Substance: PROPRANOLOL HYDROCHLORIDE
  8. BROMELAIN [Concomitant]
     Active Substance: BROMELAINS

REACTIONS (11)
  - Dysphonia [None]
  - Emotional disorder [None]
  - Cough [None]
  - Throat tightness [None]
  - Near death experience [None]
  - Dyspnoea [None]
  - Laryngospasm [None]
  - Musculoskeletal stiffness [None]
  - Vomiting [None]
  - Panic reaction [None]
  - Hypopnoea [None]

NARRATIVE: CASE EVENT DATE: 20190927
